FAERS Safety Report 14129525 (Version 1)
Quarter: 2017Q4

REPORT INFORMATION
  Report Type: Spontaneous
  Country: BR (occurrence: BR)
  Receive Date: 20171026
  Receipt Date: 20171026
  Transmission Date: 20180321
  Serious: Yes (Other)
  Sender: FDA-Public Use
  Company Number: BR-PFIZER INC-2017454368

PATIENT
  Age: 56 Year
  Sex: Female

DRUGS (3)
  1. FRONTAL [Suspect]
     Active Substance: ALPRAZOLAM
     Indication: DEPRESSION
  2. FRONTAL [Suspect]
     Active Substance: ALPRAZOLAM
     Indication: SLEEP DISORDER
  3. FRONTAL [Suspect]
     Active Substance: ALPRAZOLAM
     Indication: ANXIETY
     Dosage: 1.75 MG, DAILY, (ONE 0.25 MG TABLET AND ONE 0.5 MG TABLET IN THE MORNING , ONE 1MG TABLET AT NIGHT)
     Dates: start: 2000

REACTIONS (5)
  - Poor quality sleep [Unknown]
  - Sjogren^s syndrome [Not Recovered/Not Resolved]
  - Dependence [Not Recovered/Not Resolved]
  - Depressed mood [Not Recovered/Not Resolved]
  - Headache [Not Recovered/Not Resolved]

NARRATIVE: CASE EVENT DATE: 2014
